FAERS Safety Report 19970141 (Version 1)
Quarter: 2021Q4

REPORT INFORMATION
  Report Type: Spontaneous
  Country: ES (occurrence: ES)
  Receive Date: 20211019
  Receipt Date: 20211019
  Transmission Date: 20220303
  Serious: Yes (Hospitalization)
  Sender: FDA-Public Use
  Company Number: None

PATIENT
  Age: 78 Year
  Sex: Female

DRUGS (8)
  1. AMOXICILLIN [Suspect]
     Active Substance: AMOXICILLIN
     Dosage: 500MILLIGRAM
     Route: 048
     Dates: start: 20210122, end: 20210204
  2. CLARITHROMYCIN [Suspect]
     Active Substance: CLARITHROMYCIN
     Dosage: 500MILLIGRAM
     Route: 048
     Dates: start: 20210122, end: 20210204
  3. METRONIDAZOLE [Suspect]
     Active Substance: METRONIDAZOLE
     Dosage: 500MILLIGRAM
     Route: 048
     Dates: start: 20210122, end: 20210204
  4. ESCITALOPRAM [Concomitant]
     Active Substance: ESCITALOPRAM OXALATE
     Dosage: 10MILLIGRAM
     Route: 048
     Dates: start: 20160610, end: 20210524
  5. METOCLOPRAMIDE HYDROCHLORIDE [Concomitant]
     Active Substance: METOCLOPRAMIDE HYDROCHLORIDE
     Dosage: 10MILLIGRAM
     Route: 048
     Dates: start: 20210204, end: 20210213
  6. CETIRIZINA CINFA [Concomitant]
     Dosage: 20 TABLETS:UNIT DOSE:10MILLIGRAM
     Route: 048
     Dates: start: 20180411
  7. FESOTERODINA (8082A) [Concomitant]
     Dosage: 4MILLIGRAM
     Route: 048
     Dates: start: 20190527, end: 20210524
  8. OMEPRAZOLE [Concomitant]
     Active Substance: OMEPRAZOLE
     Dosage: 20MILLIGRAM
     Route: 048
     Dates: start: 20210122, end: 20210210

REACTIONS (1)
  - Pancreatitis acute [Recovering/Resolving]

NARRATIVE: CASE EVENT DATE: 20210209
